FAERS Safety Report 8386994-0 (Version None)
Quarter: 2012Q2

REPORT INFORMATION
  Report Type: 
  Country: None (occurrence: None)
  Receive Date: 20120522
  Receipt Date: 20120522
  Transmission Date: 20120825
  Serious: Yes (Hospitalization)
  Sender: FDA-Public Use
  Company Number: None

PATIENT
  Age: 80 Year
  Sex: Female

DRUGS (1)
  1. LOSARTAN POTASSIUM [Suspect]

REACTIONS (3)
  - BLOOD PRESSURE INCREASED [None]
  - BLOOD POTASSIUM DECREASED [None]
  - PRODUCT QUALITY ISSUE [None]
